FAERS Safety Report 16203600 (Version 1)
Quarter: 2019Q2

REPORT INFORMATION
  Report Type: Spontaneous
  Country: JP (occurrence: JP)
  Receive Date: 20190416
  Receipt Date: 20190416
  Transmission Date: 20190711
  Serious: Yes (Hospitalization, Other)
  Sender: FDA-Public Use
  Company Number: JP-PFIZER INC-2019156605

PATIENT
  Age: 45 Year
  Sex: Female

DRUGS (1)
  1. METHOTREXATE SODIUM. [Suspect]
     Active Substance: METHOTREXATE SODIUM
     Indication: OSTEOSARCOMA
     Dosage: 16.4 G, UNK
     Route: 042

REACTIONS (3)
  - Circulatory collapse [Recovered/Resolved]
  - Anaphylactoid reaction [Recovered/Resolved]
  - Acute kidney injury [Recovered/Resolved]
